FAERS Safety Report 9159231 (Version 1)
Quarter: 2013Q1

REPORT INFORMATION
  Report Type: Spontaneous
  Country: JP (occurrence: None)
  Receive Date: 20130213
  Receipt Date: 20130213
  Transmission Date: 20140127
  Serious: Yes (Hospitalization)
  Sender: FDA-Public Use
  Company Number: CIP-2013-00019

PATIENT
  Age: 62 Year
  Sex: Male

DRUGS (4)
  1. CARBOPLATIN INJECTION DRY (CARBOPLATIN) [Suspect]
     Indication: ADENOSQUAMOUS CELL LUNG CANCER
     Dosage: AUC 6 MIN-MG/ML (DAY 1 EVERY THREE
     Route: 042
  2. CARBOPLATIN INJECTION DRY (CARBOPLATIN) [Suspect]
     Dosage: AUC 6 MIN-MG/ML (DAY 1 EVERY THREE
     Route: 042
  3. PACLITAXEL [Suspect]
     Indication: ADENOSQUAMOUS CELL LUNG CANCER
     Dosage: 200 MG/M2, DAY 1 EVERY THREE WEEKS
     Route: 042
  4. DREMETHASONE (DEXAMETHASONE) [Concomitant]
     Indication: VOMITING
     Dosage: 6 MG, DAY 1, INTRAVENOUS
     Route: 042

REACTIONS (1)
  - Posterior reversible encephalopathy syndrome [None]
